FAERS Safety Report 15980973 (Version 2)
Quarter: 2019Q1

REPORT INFORMATION
  Report Type: Spontaneous
  Country: US (occurrence: US)
  Receive Date: 20190219
  Receipt Date: 20190227
  Transmission Date: 20190418
  Serious: No
  Sender: FDA-Public Use
  Company Number: US-PFIZER INC-2019074114

PATIENT
  Age: 76 Year
  Sex: Female

DRUGS (3)
  1. PEPCID [FAMOTIDINE] [Concomitant]
     Dosage: UNK
  2. PROPRANOLOL [Concomitant]
     Active Substance: PROPRANOLOL HYDROCHLORIDE
     Dosage: 20 MG, AS NEEDED (AT TIMES)
  3. PROPANOLOL HCL [Suspect]
     Active Substance: PROPRANOLOL HYDROCHLORIDE
     Dosage: 1 DF, 1X/DAY
     Route: 048
     Dates: start: 20190109

REACTIONS (2)
  - Constipation [Not Recovered/Not Resolved]
  - Abdominal discomfort [Not Recovered/Not Resolved]

NARRATIVE: CASE EVENT DATE: 20190109
